FAERS Safety Report 8105009-2 (Version None)
Quarter: 2012Q1

REPORT INFORMATION
  Report Type: 
  Country: None (occurrence: None)
  Receive Date: 20120201
  Receipt Date: 20120120
  Transmission Date: 20120608
  Serious: Yes (Hospitalization)
  Sender: FDA-Public Use
  Company Number: JP-GLAXOSMITHKLINE-B0776997A

PATIENT
  Sex: Female

DRUGS (2)
  1. TEGRETOL [Concomitant]
     Indication: EPILEPSY
     Dosage: 200MG PER DAY
     Route: 048
     Dates: start: 20111018, end: 20111229
  2. LAMICTAL [Suspect]
     Indication: EPILEPSY
     Dosage: 50MG PER DAY
     Route: 048
     Dates: start: 20111122, end: 20111204

REACTIONS (12)
  - PYREXIA [None]
  - EOSINOPHIL COUNT INCREASED [None]
  - ERYTHEMA [None]
  - XEROSIS [None]
  - HEPATIC FUNCTION ABNORMAL [None]
  - SWELLING [None]
  - DRUG RASH WITH EOSINOPHILIA AND SYSTEMIC SYMPTOMS [None]
  - RASH [None]
  - PAIN [None]
  - DRUG ERUPTION [None]
  - LYMPHOCYTE MORPHOLOGY ABNORMAL [None]
  - PIGMENTATION DISORDER [None]
